FAERS Safety Report 8814345 (Version 2)
Quarter: 2012Q4

REPORT INFORMATION
  Report Type: 
  Country: JP (occurrence: JP)
  Receive Date: 20120928
  Receipt Date: 20121213
  Transmission Date: 20130627
  Serious: Yes (Other)
  Sender: FDA-Public Use
  Company Number: JP-BRISTOL-MYERS SQUIBB COMPANY-16998973

PATIENT
  Age: 62 Year
  Sex: Female

DRUGS (14)
  1. ABILIFY TABS [Suspect]
     Indication: SCHIZOPHRENIA
     Dosage: on 30Mar11 dose reduced to 12mg
30Mar11-3Apr11, 12mg
     Route: 048
     Dates: start: 20101217, end: 20110403
  2. MUCOSTA [Suspect]
     Dosage: Tablet
     Route: 048
     Dates: start: 20110404, end: 20110417
  3. RISPERDAL [Concomitant]
     Dates: start: 20101217, end: 20110109
  4. DEPAKENE [Concomitant]
     Dates: start: 20101217, end: 20110417
  5. SENNOSIDE [Concomitant]
     Dosage: Tab
     Dates: start: 20101217, end: 20110417
  6. BENZALIN [Concomitant]
     Dates: start: 20101217, end: 20110515
  7. INVEGA [Concomitant]
     Dosage: TAb
     Dates: start: 20110330, end: 20110515
  8. SEROQUEL [Concomitant]
     Dates: start: 20110330, end: 20110403
  9. MAGMITT [Concomitant]
     Dosage: Tab
     Dates: start: 20110404, end: 20110417
  10. SERENACE [Concomitant]
     Dosage: Injection
     Dates: start: 20110408, end: 20110414
  11. GABAPEN [Concomitant]
     Dates: start: 20110404, end: 20110417
  12. TETRAMIDE [Concomitant]
     Dosage: Tab
     Dates: start: 20110414, end: 20110417
  13. SILECE [Concomitant]
     Dates: start: 20110418, end: 20110424
  14. TAKEPRON [Concomitant]
     Dosage: tab
     Dates: start: 20110418, end: 20110515

REACTIONS (6)
  - Choking [Unknown]
  - Pneumonia aspiration [Unknown]
  - Pyrexia [Unknown]
  - Headache [Unknown]
  - Fatigue [Unknown]
  - Somnolence [Unknown]
